FAERS Safety Report 17312687 (Version 2)
Quarter: 2020Q1

REPORT INFORMATION
  Report Type: Report from Study
  Country: None (occurrence: US)
  Receive Date: 20200123
  Receipt Date: 20200223
  Transmission Date: 20200409
  Serious: Yes (Other)
  Sender: FDA-Public Use
  Company Number: US-ABBVIE-20K-163-3246673-00

PATIENT
  Sex: Male

DRUGS (1)
  1. HUMIRA [Suspect]
     Active Substance: ADALIMUMAB
     Indication: CROHN^S DISEASE
     Route: 058

REACTIONS (6)
  - Medical device implantation [Recovered/Resolved]
  - Small intestinal stenosis [Recovering/Resolving]
  - Arterial occlusive disease [Unknown]
  - Herpes zoster [Unknown]
  - Fatigue [Recovered/Resolved]
  - Pneumonia [Recovered/Resolved]
